FAERS Safety Report 9695959 (Version 1)
Quarter: 2013Q4

REPORT INFORMATION
  Report Type: Spontaneous
  Country: MX (occurrence: MX)
  Receive Date: 20131119
  Receipt Date: 20131119
  Transmission Date: 20140711
  Serious: Yes (Other)
  Sender: FDA-Public Use
  Company Number: MX-BAYER-2013-140527

PATIENT
  Sex: Female

DRUGS (1)
  1. CANESTEN CREMA [Suspect]

REACTIONS (1)
  - Haemorrhage [None]
